FAERS Safety Report 5127986-4 (Version None)
Quarter: 2006Q4

REPORT INFORMATION
  Report Type: 
  Country: None (occurrence: None)
  Receive Date: 20061010
  Receipt Date: 20060929
  Transmission Date: 20070319
  Serious: Yes (Other)
  Sender: FDA-Public Use
  Company Number: 2006118774

PATIENT
  Sex: Male

DRUGS (2)
  1. TAHOR                    (ATORVASTATIN) [Suspect]
     Indication: TYPE IIA HYPERLIPIDAEMIA
     Dosage: 10 MG (1D)
  2. DRUG, UNSPECIFIED DRUG, UNSPECIFIED) [Concomitant]

REACTIONS (2)
  - FLUSHING [None]
  - LIVER DISORDER [None]
